FAERS Safety Report 13408393 (Version 1)
Quarter: 2017Q2

REPORT INFORMATION
  Report Type: Spontaneous
  Country: US (occurrence: US)
  Receive Date: 20170405
  Receipt Date: 20170405
  Transmission Date: 20170830
  Serious: Yes (Hospitalization, Disabling)
  Sender: FDA-Public Use
  Company Number: None

PATIENT
  Age: 60 Year
  Sex: Male
  Weight: 105.3 kg

DRUGS (4)
  1. METOPROLOL TARTRATE. [Concomitant]
     Active Substance: METOPROLOL TARTRATE
  2. LISINOPRIL. [Suspect]
     Active Substance: LISINOPRIL
     Indication: HYPERTENSION
     Dosage: ?          QUANTITY:180 TABLET(S);OTHER FREQUENCY:TAKE 2 TABLETS;OTHER ROUTE:BY MOUTH?
     Route: 048
     Dates: start: 20170303, end: 20170314
  3. ASA [Concomitant]
     Active Substance: ASPIRIN
  4. LIPITOR [Concomitant]
     Active Substance: ATORVASTATIN CALCIUM

REACTIONS (5)
  - Feeling abnormal [None]
  - Asthenia [None]
  - Pain [None]
  - Fatigue [None]
  - Product quality issue [None]

NARRATIVE: CASE EVENT DATE: 20170303
